FAERS Safety Report 4777396-4 (Version None)
Quarter: 2005Q3

REPORT INFORMATION
  Report Type: 
  Country: None (occurrence: None)
  Receive Date: 20050915
  Receipt Date: 20050829
  Transmission Date: 20060218
  Serious: Yes (Death)
  Sender: FDA-Public Use
  Company Number: 2005BH000704

PATIENT
  Age: 41 Year
  Sex: Male
  Weight: 76.2043 kg

DRUGS (2)
  1. SODIUM CITRATE [Suspect]
     Indication: DRUG USE FOR UNKNOWN INDICATION
     Dosage: ONCE; IV
     Route: 042
     Dates: start: 20050625, end: 20050625
  2. SODIUM CHLORIDE 0.9% [Suspect]
     Indication: DRUG USE FOR UNKNOWN INDICATION
     Dosage: ONCE; IV
     Route: 042
     Dates: start: 20050625, end: 20050625

REACTIONS (2)
  - POST PROCEDURAL COMPLICATION [None]
  - SKIN EXFOLIATION [None]
